FAERS Safety Report 20740654 (Version 5)
Quarter: 2024Q4

REPORT INFORMATION
  Report Type: Spontaneous
  Country: US (occurrence: US)
  Receive Date: 20220422
  Receipt Date: 20241211
  Transmission Date: 20250114
  Serious: No
  Sender: PFIZER
  Company Number: US-PFIZER INC-202200411573

PATIENT
  Age: 84 Year
  Sex: Female

DRUGS (1)
  1. IBRANCE [Suspect]
     Active Substance: PALBOCICLIB
     Indication: Malignant nipple neoplasm female
     Dosage: 75 MG, CYCLIC, ONCE DAILY FOR 21 DAYS ND 7 DAYS PAUSE IN A 28 DAY CYCLE
     Route: 048

REACTIONS (2)
  - Memory impairment [Unknown]
  - Neutrophil count decreased [Recovering/Resolving]
